FAERS Safety Report 5982508-0 (Version None)
Quarter: 2008Q4

REPORT INFORMATION
  Report Type: 
  Country: None (occurrence: None)
  Receive Date: 20081208
  Receipt Date: 20081127
  Transmission Date: 20090506
  Serious: Yes (Other)
  Sender: FDA-Public Use
  Company Number: SE-CELGENEUS-150-C5013-08081367

PATIENT
  Sex: Female
  Weight: 84.2 kg

DRUGS (4)
  1. REVLIMID [Suspect]
     Indication: MYELODYSPLASTIC SYNDROME
     Route: 048
     Dates: start: 20070310, end: 20071114
  2. REVLIMID [Suspect]
     Route: 048
     Dates: start: 20071115, end: 20080318
  3. REVLIMID [Suspect]
     Route: 048
     Dates: start: 20080319
  4. REVLIMID [Suspect]
     Indication: MYELODYSPLASTIC SYNDROME
     Route: 048
     Dates: start: 20060310, end: 20070309

REACTIONS (1)
  - URINE HUMAN CHORIONIC GONADOTROPIN ABNORMAL [None]
